FAERS Safety Report 6128982-0 (Version None)
Quarter: 2009Q1

REPORT INFORMATION
  Report Type: 
  Country: None (occurrence: None)
  Receive Date: 20090324
  Receipt Date: 20090320
  Transmission Date: 20090719
  Serious: Yes (Death, Hospitalization)
  Sender: FDA-Public Use
  Company Number: PHHY2009GB10140

PATIENT
  Age: 77 Year
  Sex: Female

DRUGS (8)
  1. RASILEZ [Suspect]
     Dosage: 150 MG DAILY
     Dates: start: 20081030
  2. ASPIRIN [Concomitant]
     Dosage: 75 MG
  3. MICARDIS [Concomitant]
     Dosage: 80/12.5 MG
  4. ATENOLOL [Concomitant]
  5. LERCANIDIPINE [Concomitant]
  6. OMEPRAZOLE [Concomitant]
  7. METOCLOPRAMIDE [Concomitant]
  8. TERAZOSIN HCL [Concomitant]

REACTIONS (3)
  - CEREBRAL HAEMORRHAGE [None]
  - CEREBROVASCULAR ACCIDENT [None]
  - LOSS OF CONSCIOUSNESS [None]
